FAERS Safety Report 4337967-6 (Version None)
Quarter: 2004Q2

REPORT INFORMATION
  Report Type: 
  Country: None (occurrence: None)
  Receive Date: 20040413
  Receipt Date: 20040407
  Transmission Date: 20050107
  Serious: Yes (Hospitalization)
  Sender: FDA-Public Use
  Company Number: SE-MERCK-0404SWE00005

PATIENT
  Age: 80 Year
  Sex: Female

DRUGS (8)
  1. ACETAMINOPHEN [Concomitant]
     Route: 065
  2. ACETAMINOPHEN AND CODEINE [Concomitant]
     Route: 065
  3. VASOTEC [Concomitant]
     Route: 065
  4. ISRADIPINE [Concomitant]
     Route: 065
  5. LACTULOSE [Concomitant]
     Route: 065
  6. LANSOPRAZOLE [Concomitant]
     Route: 065
  7. LEVOTHYROXINE SODIUM [Concomitant]
     Route: 065
  8. VIOXX [Suspect]
     Indication: BACK PAIN
     Route: 048
     Dates: start: 20030901, end: 20031015

REACTIONS (5)
  - BLOOD CREATININE INCREASED [None]
  - BRADYCARDIA [None]
  - C-REACTIVE PROTEIN INCREASED [None]
  - HYPERKALAEMIA [None]
  - KYPHOSIS [None]
